FAERS Safety Report 25552383 (Version 1)
Quarter: 2025Q3

REPORT INFORMATION
  Report Type: Spontaneous
  Country: GB (occurrence: GB)
  Receive Date: 20250715
  Receipt Date: 20250715
  Transmission Date: 20251021
  Serious: Yes (Other)
  Sender: NOVO NORDISK
  Company Number: None

PATIENT
  Age: 43 Year
  Sex: Female
  Weight: 55 kg

DRUGS (2)
  1. WEGOVY [Suspect]
     Active Substance: SEMAGLUTIDE
     Indication: Endometriosis
     Dosage: 5 MG, QW
     Dates: start: 20240303, end: 20250526
  2. LYMECYCLINE [Concomitant]
     Active Substance: LYMECYCLINE
     Indication: Acne
     Dates: start: 20200205

REACTIONS (3)
  - Urinary tract infection [Recovering/Resolving]
  - Product use in unapproved indication [Recovered/Resolved]
  - Product use issue [Recovered/Resolved]

NARRATIVE: CASE EVENT DATE: 20240303
